FAERS Safety Report 17053411 (Version 3)
Quarter: 2020Q1

REPORT INFORMATION
  Report Type: Spontaneous
  Country: BR (occurrence: BR)
  Receive Date: 20191120
  Receipt Date: 20200309
  Transmission Date: 20200409
  Serious: No
  Sender: FDA-Public Use
  Company Number: BR-ABBVIE-19P-020-3002003-00

PATIENT
  Sex: Male
  Weight: 73.9 kg

DRUGS (11)
  1. LEVOID [Suspect]
     Active Substance: LEVOTHYROXINE
     Indication: HYPERTHYROIDISM
     Dosage: DAILY DOSE: 1 TABLET 1 HOUR BEFORE MEAL
     Route: 048
     Dates: start: 201809, end: 201811
  2. SYNTHROID [Suspect]
     Active Substance: LEVOTHYROXINE SODIUM
     Indication: HYPOTHYROIDISM
     Route: 048
     Dates: start: 2019, end: 201912
  3. EUTHYROX [Suspect]
     Active Substance: LEVOTHYROXINE SODIUM
     Indication: HYPERTHYROIDISM
     Dosage: DAILY DOSE: 1 TABLET 1 HOUR BEFORE MEAL
     Route: 048
     Dates: end: 201901
  4. ANSITEC [Concomitant]
     Active Substance: BUSPIRONE HYDROCHLORIDE
     Indication: AGITATION
  5. PURAN [Suspect]
     Active Substance: LEVOTHYROXINE SODIUM
     Indication: HYPERTHYROIDISM
     Dosage: 1 HOUR BEFORE MEALS
     Route: 048
     Dates: start: 201806, end: 201808
  6. SYNTHROID [Suspect]
     Active Substance: LEVOTHYROXINE SODIUM
     Indication: HYPERTHYROIDISM
     Dosage: DAILY DOSE:25MCG ADMINISTERED BEFORE MEAL AT 6AM
     Route: 048
     Dates: start: 201812
  7. VODSSO [Suspect]
     Active Substance: VALPROIC ACID
     Indication: MIGRAINE
     Route: 048
     Dates: start: 2015, end: 2015
  8. ANSITEC [Concomitant]
     Active Substance: BUSPIRONE HYDROCHLORIDE
     Indication: ANXIETY
     Route: 048
     Dates: start: 201910
  9. DEPAKENE [Suspect]
     Active Substance: VALPROIC ACID
     Indication: MIGRAINE
     Route: 048
     Dates: start: 201508, end: 201907
  10. PURAN [Suspect]
     Active Substance: LEVOTHYROXINE SODIUM
     Indication: HYPOTHYROIDISM
  11. LEVOID [Suspect]
     Active Substance: LEVOTHYROXINE
     Indication: HYPOTHYROIDISM

REACTIONS (28)
  - Vitamin C decreased [Unknown]
  - Weight abnormal [Not Recovered/Not Resolved]
  - Nervousness [Unknown]
  - Hyperhidrosis [Unknown]
  - Insomnia [Not Recovered/Not Resolved]
  - Thyroid disorder [Unknown]
  - Blood thyroid stimulating hormone [Unknown]
  - Thyroxine [Unknown]
  - Insomnia [Unknown]
  - Increased appetite [Recovered/Resolved]
  - Depression [Recovered/Resolved]
  - Chest pain [Recovered/Resolved]
  - Asthenia [Not Recovered/Not Resolved]
  - Vitamin D decreased [Not Recovered/Not Resolved]
  - Angina pectoris [Unknown]
  - Thyroxine increased [Unknown]
  - Alopecia [Recovering/Resolving]
  - Thyroid disorder [Not Recovered/Not Resolved]
  - Pain in extremity [Unknown]
  - Dermatitis [Unknown]
  - Fatigue [Not Recovered/Not Resolved]
  - Blood thyroid stimulating hormone increased [Unknown]
  - Euphoric mood [Unknown]
  - Fatigue [Not Recovered/Not Resolved]
  - Pilonidal cyst [Recovered/Resolved]
  - Heart rate increased [Not Recovered/Not Resolved]
  - Feeling hot [Recovered/Resolved]
  - Mood altered [Unknown]

NARRATIVE: CASE EVENT DATE: 2017
